FAERS Safety Report 18269253 (Version 1)
Quarter: 2020Q3

REPORT INFORMATION
  Report Type: Spontaneous
  Country: FR (occurrence: FR)
  Receive Date: 20200915
  Receipt Date: 20200915
  Transmission Date: 20201103
  Serious: No
  Sender: FDA-Public Use
  Company Number: FR-JAZZ-2020-FR-003804

PATIENT

DRUGS (4)
  1. METHOTREXATE. [Concomitant]
     Active Substance: METHOTREXATE
  2. ERWINASE [Suspect]
     Active Substance: ASPARAGINASE ERWINIA CHRYSANTHEMI
     Indication: ANGIOCENTRIC LYMPHOMA
     Dosage: 20000 UI/M^2
     Route: 065
     Dates: start: 20200120
  3. GEMCITABINE. [Concomitant]
     Active Substance: GEMCITABINE
  4. CALCIUM FOLINATE [Concomitant]
     Active Substance: LEUCOVORIN CALCIUM

REACTIONS (1)
  - Drug hypersensitivity [Unknown]
